FAERS Safety Report 9108645 (Version 2)
Quarter: 2013Q1

REPORT INFORMATION
  Report Type: Spontaneous
  Country: FR (occurrence: FR)
  Receive Date: 20130222
  Receipt Date: 20130305
  Transmission Date: 20140127
  Serious: Yes (Other)
  Sender: FDA-Public Use
  Company Number: FR-BIOGENIDEC-2013BI016711

PATIENT
  Age: 1 Month
  Sex: Male

DRUGS (2)
  1. TYSABRI [Suspect]
     Indication: MATERNAL EXPOSURE TIMING UNSPECIFIED
     Route: 064
     Dates: start: 2008, end: 20121008
  2. LOVENOX [Concomitant]
     Indication: THROMBOSIS PROPHYLAXIS
     Dates: start: 201201, end: 201212

REACTIONS (3)
  - Neutropenia [Recovered/Resolved]
  - Thrombocytopenia [Recovered/Resolved]
  - Anaemia [Recovered/Resolved]
